FAERS Safety Report 25836415 (Version 1)
Quarter: 2025Q3

REPORT INFORMATION
  Report Type: Spontaneous
  Country: US (occurrence: US)
  Receive Date: 20250923
  Receipt Date: 20250923
  Transmission Date: 20251021
  Serious: Yes (Life-Threatening, Hospitalization)
  Sender: STRIDES
  Company Number: None

PATIENT
  Age: 50 Year
  Sex: Male

DRUGS (1)
  1. PREDNISOLONE [Suspect]
     Active Substance: PREDNISOLONE
     Indication: Asthma
     Route: 048

REACTIONS (13)
  - Metabolic acidosis [Recovering/Resolving]
  - Shock [Recovering/Resolving]
  - Obesity [Unknown]
  - Hypertriglyceridaemia [Unknown]
  - Diabetic ketoacidosis [Unknown]
  - Hyponatraemia [Recovering/Resolving]
  - Renal impairment [Recovering/Resolving]
  - Encephalopathy [Recovering/Resolving]
  - Amnesia [Recovering/Resolving]
  - Hypertension [Recovering/Resolving]
  - Diabetes mellitus [Unknown]
  - Meningitis listeria [Recovering/Resolving]
  - Intentional product misuse [Recovering/Resolving]
